FAERS Safety Report 4451715-0 (Version None)
Quarter: 2004Q3

REPORT INFORMATION
  Report Type: 
  Country: None (occurrence: None)
  Receive Date: 20040915
  Receipt Date: 20040907
  Transmission Date: 20050211
  Serious: Yes (Other)
  Sender: FDA-Public Use
  Company Number: 2004230270JP

PATIENT
  Age: 58 Year
  Sex: Male

DRUGS (4)
  1. HALCION [Suspect]
     Indication: INSOMNIA
     Dosage: 0.5 MG/DAY, ORAL
     Route: 048
  2. BROTIZOLAM (BROTIZOLAM) [Concomitant]
  3. ZOLPIDEM TARTRATE [Concomitant]
  4. AMOBAN [Concomitant]

REACTIONS (6)
  - BRAIN CONTUSION [None]
  - CONVULSION [None]
  - POST PROCEDURAL COMPLICATION [None]
  - ROAD TRAFFIC ACCIDENT [None]
  - TEMPORAL LOBE EPILEPSY [None]
  - TIBIA FRACTURE [None]
